FAERS Safety Report 10278673 (Version 1)
Quarter: 2014Q3

REPORT INFORMATION
  Report Type: Spontaneous
  Country: US (occurrence: US)
  Receive Date: 20140704
  Receipt Date: 20140704
  Transmission Date: 20150326
  Serious: No
  Sender: FDA-Public Use
  Company Number: US-ASTRAZENECA-2014SE46430

PATIENT
  Age: 66 Year
  Sex: Female
  Weight: 49 kg

DRUGS (4)
  1. BABY ASPIRIN [Concomitant]
     Active Substance: ASPIRIN
     Dosage: ONE DAILY
     Route: 048
     Dates: start: 2004
  2. OMEPRAZOLE. [Suspect]
     Active Substance: OMEPRAZOLE
     Indication: GASTROOESOPHAGEAL REFLUX DISEASE
     Dosage: ?
     Route: 048
     Dates: start: 2013, end: 201406
  3. OMEPRAZOLE. [Suspect]
     Active Substance: OMEPRAZOLE
     Indication: GASTROOESOPHAGEAL REFLUX DISEASE
     Route: 048
     Dates: start: 201406
  4. CRESTOR [Suspect]
     Active Substance: ROSUVASTATIN CALCIUM
     Indication: BLOOD CHOLESTEROL INCREASED
     Route: 048
     Dates: start: 2011

REACTIONS (9)
  - Gastrooesophageal reflux disease [Not Recovered/Not Resolved]
  - Diarrhoea [Unknown]
  - Diverticulitis [Unknown]
  - Abdominal pain [Unknown]
  - Flatulence [Unknown]
  - Intentional product misuse [Unknown]
  - Adverse event [Unknown]
  - Abdominal pain [Unknown]
  - Abdominal distension [Unknown]

NARRATIVE: CASE EVENT DATE: 2013
